FAERS Safety Report 8975964 (Version 1)
Quarter: 2012Q4

REPORT INFORMATION
  Report Type: 
  Country: US (occurrence: US)
  Receive Date: 20121219
  Receipt Date: 20121219
  Transmission Date: 20130627
  Serious: No
  Sender: FDA-Public Use
  Company Number: US-AMGEN-USASP2012068800

PATIENT
  Age: 52 Year
  Sex: Female

DRUGS (1)
  1. PROLIA [Suspect]
     Indication: OSTEOPOROSIS POSTMENOPAUSAL
     Dosage: UNK
     Dates: start: 2012

REACTIONS (5)
  - Pain in jaw [Recovered/Resolved]
  - Pain [Not Recovered/Not Resolved]
  - Tooth fracture [Unknown]
  - Toothache [Unknown]
  - Bone pain [Not Recovered/Not Resolved]
